FAERS Safety Report 8631065 (Version 3)
Quarter: 2013Q4

REPORT INFORMATION
  Report Type: Spontaneous
  Country: US (occurrence: US)
  Receive Date: 20120622
  Receipt Date: 20131115
  Transmission Date: 20140711
  Serious: No
  Sender: FDA-Public Use
  Company Number: US-ASTRAZENECA-2011SE63437

PATIENT
  Age: 54 Year
  Sex: Female
  Weight: 99.8 kg

DRUGS (5)
  1. SYMBICORT PMDI [Suspect]
     Indication: ASTHMA
     Dosage: 160/4.5 MCG TWO TIMES A DAY
     Route: 055
  2. NEXIUM [Suspect]
     Indication: GASTROOESOPHAGEAL REFLUX DISEASE
     Route: 048
     Dates: start: 2010, end: 201307
  3. ALLEVE [Concomitant]
     Indication: PAIN
     Dosage: 1 TO 2 TABLETS PRN
     Route: 048
     Dates: start: 2012
  4. TUMS [Concomitant]
     Indication: DYSPEPSIA
  5. PEPTOBISMOL [Concomitant]
     Indication: DYSPEPSIA

REACTIONS (6)
  - Pain [Unknown]
  - Dyspnoea [Unknown]
  - Asthma [Unknown]
  - Osteoarthritis [Unknown]
  - Dyspepsia [Unknown]
  - Drug dose omission [Unknown]
